FAERS Safety Report 7884864-5 (Version None)
Quarter: 2011Q4

REPORT INFORMATION
  Report Type: 
  Country: None (occurrence: None)
  Receive Date: 20111102
  Receipt Date: 20111026
  Transmission Date: 20120403
  Serious: Yes (Other)
  Sender: FDA-Public Use
  Company Number: PHHY2011BR92366

PATIENT
  Sex: Female

DRUGS (1)
  1. EXFORGE [Suspect]
     Indication: HYPERTENSION
     Dosage: 1 DF (160/5 MG), DAILY

REACTIONS (7)
  - OSTEOPOROSIS [None]
  - ASTHMA [None]
  - DYSPNOEA [None]
  - DIABETES MELLITUS [None]
  - DIZZINESS [None]
  - CHEST PAIN [None]
  - BLOOD PRESSURE INCREASED [None]
